FAERS Safety Report 4646916-2 (Version None)
Quarter: 2005Q2

REPORT INFORMATION
  Report Type: 
  Country: None (occurrence: None)
  Receive Date: 20050427
  Receipt Date: 20031121
  Transmission Date: 20051028
  Serious: Yes (Hospitalization, Other)
  Sender: FDA-Public Use
  Company Number: US-MERCK-0311USA02541

PATIENT
  Age: 45 Year
  Sex: Male
  Weight: 68 kg

DRUGS (9)
  1. VIOXX [Suspect]
     Indication: BACK PAIN
     Route: 048
     Dates: start: 20020901, end: 20021201
  2. VIOXX [Suspect]
     Indication: INFLAMMATION
     Route: 048
     Dates: start: 20020901, end: 20021201
  3. SOMA [Concomitant]
     Indication: SLEEP DISORDER
     Route: 065
  4. SOMA [Concomitant]
     Indication: INFLAMMATION
     Route: 065
  5. AMITRIPTYLINE HYDROCHLORIDE [Concomitant]
     Indication: INFLAMMATION
     Route: 065
  6. FLEXERIL [Concomitant]
     Indication: PAIN
     Route: 065
  7. FLEXERIL [Concomitant]
     Indication: INFLAMMATION
     Route: 065
  8. APAP TAB [Concomitant]
     Indication: CHEST PAIN
     Route: 065
     Dates: start: 20020301, end: 20021201
  9. CODEINE [Concomitant]
     Indication: CHEST PAIN
     Route: 065
     Dates: start: 20020301, end: 20021201

REACTIONS (22)
  - ABDOMINAL PAIN [None]
  - ANGINA PECTORIS [None]
  - ANXIETY [None]
  - ASTHENIA [None]
  - BLOOD CHOLESTEROL INCREASED [None]
  - CARDIAC DISORDER [None]
  - CEREBROVASCULAR ACCIDENT [None]
  - CHEST DISCOMFORT [None]
  - CHEST PAIN [None]
  - CORONARY ARTERY DISEASE [None]
  - DYSPEPSIA [None]
  - DYSPNOEA [None]
  - FEAR [None]
  - GENERALISED ANXIETY DISORDER [None]
  - INJURY [None]
  - NAUSEA [None]
  - NON-CARDIAC CHEST PAIN [None]
  - SINUS TACHYCARDIA [None]
  - SLEEP DISORDER [None]
  - STRESS [None]
  - SYNCOPE [None]
  - VOMITING [None]
